FAERS Safety Report 7843214 (Version 6)
Quarter: 2014Q3

REPORT INFORMATION
  Report Type: Report from Study
  Country: CA (occurrence: CA)
  Receive Date: 20110307
  Receipt Date: 20140723
  Transmission Date: 20150326
  Serious: Yes (Death, Life-Threatening, Hospitalization, Other)
  Sender: FDA-Public Use
  Company Number: CA-BRISTOL-MYERS SQUIBB COMPANY-15578800

PATIENT
  Age: 36 Year
  Sex: Female
  Weight: 82.8 kg

DRUGS (15)
  1. ETOPOSIDE. [Suspect]
     Active Substance: ETOPOSIDE
     Indication: NON-SMALL CELL LUNG CANCER
     Dosage: 10MAY-11JUN10=33DAYS,19JUL-23JUL10=5 DAYS,
     Route: 042
     Dates: start: 20100510, end: 20100826
  2. HYDROMORPHONE [Concomitant]
     Active Substance: HYDROMORPHONE
     Dates: start: 201004
  3. VITAMIN B12 [Concomitant]
     Active Substance: CYANOCOBALAMIN
  4. SENOKOT [Concomitant]
     Active Substance: SENNOSIDES
     Dates: start: 201004
  5. COLACE [Concomitant]
     Active Substance: DOCUSATE SODIUM
     Dates: start: 201003
  6. LOSEC [Concomitant]
     Active Substance: OMEPRAZOLE
     Dates: start: 20100616
  7. DAPOXETINE HYDROCHLORIDE [Concomitant]
     Indication: COUGH
  8. FOLIC ACID. [Concomitant]
     Active Substance: FOLIC ACID
     Dates: start: 20100504
  9. LORAZEPAM. [Concomitant]
     Active Substance: LORAZEPAM
     Dates: start: 20100507
  10. GRAVOL [Concomitant]
     Active Substance: DIMENHYDRINATE
     Dates: start: 20100728
  11. ONDANSETRON [Concomitant]
     Active Substance: ONDANSETRON
     Dates: start: 20100728
  12. DEXAMETHASONE. [Concomitant]
     Active Substance: DEXAMETHASONE
     Dates: start: 201004
  13. FENTANYL. [Concomitant]
     Active Substance: FENTANYL
     Dates: start: 20100512
  14. CISPLATIN. [Suspect]
     Active Substance: CISPLATIN
     Indication: NON-SMALL CELL LUNG CANCER
     Dosage: 10MAY-14JUN10=36DAYS,19JUL-26JUL10=8 DAYS,
     Route: 042
     Dates: start: 20100510, end: 20100826
  15. PROCHLORPERAZINE. [Concomitant]
     Active Substance: PROCHLORPERAZINE
     Dates: start: 20100511

REACTIONS (3)
  - Sepsis [Fatal]
  - Pneumonia bacterial [Not Recovered/Not Resolved]
  - Bronchopleural fistula [Not Recovered/Not Resolved]

NARRATIVE: CASE EVENT DATE: 20100806
